FAERS Safety Report 10379134 (Version 2)
Quarter: 2014Q3

REPORT INFORMATION
  Report Type: Report from Study
  Country: AT (occurrence: AT)
  Receive Date: 20140812
  Receipt Date: 20140812
  Transmission Date: 20150326
  Serious: Yes (Other)
  Sender: FDA-Public Use
  Company Number: AT-PFIZER INC-2014219254

PATIENT
  Age: 81 Hour
  Sex: Male
  Weight: .78 kg

DRUGS (2)
  1. MILRINONE [Suspect]
     Active Substance: MILRINONE
     Indication: PULMONARY HYPERTENSION
     Dosage: 0.6 MCG/KG/MIN
     Route: 042
  2. SILDENAFIL CITRATE. [Suspect]
     Active Substance: SILDENAFIL CITRATE
     Indication: PULMONARY HYPERTENSION
     Dosage: 1.2 MG/KG, DAILY
     Route: 042

REACTIONS (2)
  - Off label use [Unknown]
  - Pulmonary haemorrhage [Unknown]
